FAERS Safety Report 6993678-X (Version None)
Quarter: 2010Q3

REPORT INFORMATION
  Report Type: 
  Country: None (occurrence: None)
  Receive Date: 20100917
  Receipt Date: 20080613
  Transmission Date: 20110219
  Serious: Yes (Other)
  Sender: FDA-Public Use
  Company Number: US-ASTRAZENECA-2006UW12077

PATIENT
  Age: 422 Month
  Sex: Female
  Weight: 88.5 kg

DRUGS (20)
  1. SEROQUEL [Suspect]
     Indication: BIPOLAR DISORDER
     Route: 048
     Dates: start: 20000101, end: 20020801
  2. SEROQUEL [Suspect]
     Indication: DEPRESSION
     Route: 048
     Dates: start: 20000101, end: 20020801
  3. SEROQUEL [Suspect]
     Indication: ANXIETY
     Route: 048
     Dates: start: 20000101, end: 20020801
  4. SEROQUEL [Suspect]
     Indication: SLEEP DISORDER
     Route: 048
     Dates: start: 20000101, end: 20020801
  5. SEROQUEL [Suspect]
     Dosage: 25 - 500 MG, AT BEDTIME
     Route: 048
     Dates: start: 20011019
  6. SEROQUEL [Suspect]
     Dosage: 25 - 500 MG, AT BEDTIME
     Route: 048
     Dates: start: 20011019
  7. SEROQUEL [Suspect]
     Dosage: 25 - 500 MG, AT BEDTIME
     Route: 048
     Dates: start: 20011019
  8. SEROQUEL [Suspect]
     Dosage: 25 - 500 MG, AT BEDTIME
     Route: 048
     Dates: start: 20011019
  9. SEROQUEL [Suspect]
     Dosage: 200 - 800MG
     Route: 048
  10. SEROQUEL [Suspect]
     Dosage: 200 - 800MG
     Route: 048
  11. SEROQUEL [Suspect]
     Dosage: 200 - 800MG
     Route: 048
  12. SEROQUEL [Suspect]
     Dosage: 200 - 800MG
     Route: 048
  13. ZYPREXA [Suspect]
  14. ABILIFY [Concomitant]
  15. GEODON [Concomitant]
     Dates: start: 20041027
  16. RISPERDAL [Concomitant]
  17. TRAZODONE HCL [Concomitant]
     Dosage: 50 - 100 MG, AT NIGHT
     Dates: start: 20040806
  18. NEURONTIN [Concomitant]
  19. DEPAKOTE [Concomitant]
     Dates: start: 20041027
  20. ZOLOFT [Concomitant]
     Dosage: 50 - 100 MG
     Dates: start: 20011019

REACTIONS (3)
  - DIABETES MELLITUS [None]
  - PANCREATITIS [None]
  - TYPE 2 DIABETES MELLITUS [None]
